FAERS Safety Report 5723757-6 (Version None)
Quarter: 2008Q2

REPORT INFORMATION
  Report Type: 
  Country: None (occurrence: None)
  Receive Date: 20080430
  Receipt Date: 20080421
  Transmission Date: 20081010
  Serious: Yes (Hospitalization)
  Sender: FDA-Public Use
  Company Number: US-JNJFOC-20080300013

PATIENT
  Sex: Male
  Weight: 74.84 kg

DRUGS (12)
  1. DURAGESIC-100 [Suspect]
     Route: 062
  2. DURAGESIC-100 [Suspect]
     Indication: DRUG USE FOR UNKNOWN INDICATION
     Route: 062
  3. COMPAZINE [Concomitant]
     Route: 065
  4. COZAAR [Concomitant]
     Route: 065
  5. LASIX [Concomitant]
     Route: 065
  6. SYNTHROID [Concomitant]
     Route: 065
  7. REGLAN [Concomitant]
     Route: 065
  8. ALBUTEROL [Concomitant]
     Route: 065
  9. TEMAZEPAM [Concomitant]
     Route: 065
  10. ATIVAN [Concomitant]
     Route: 065
  11. DARVOCET [Concomitant]
     Route: 065
  12. CELEBREX [Concomitant]
     Route: 065

REACTIONS (2)
  - CARDIAC FAILURE CONGESTIVE [None]
  - PNEUMONIA [None]
